FAERS Safety Report 15776974 (Version 2)
Quarter: 2019Q1

REPORT INFORMATION
  Report Type: Report from Study
  Country: US (occurrence: US)
  Receive Date: 20181231
  Receipt Date: 20190114
  Transmission Date: 20190417
  Serious: Yes (Death, Hospitalization, Other)
  Sender: FDA-Public Use
  Company Number: US-AMGEN-USACT2018185759

PATIENT
  Age: 59 Year
  Sex: Male
  Weight: 77.9 kg

DRUGS (3)
  1. ROMIPLOSTIM [Suspect]
     Active Substance: ROMIPLOSTIM
     Indication: THROMBOCYTOPENIA
     Dosage: 2 MUG/KG, QWK
     Route: 058
     Dates: start: 20161206
  2. ROMIPLOSTIM [Suspect]
     Active Substance: ROMIPLOSTIM
     Dosage: 250 MUG, QWK
     Route: 058
     Dates: end: 20181227
  3. ROMIPLOSTIM [Suspect]
     Active Substance: ROMIPLOSTIM
     Dosage: 300 MUG, QWK
     Route: 058

REACTIONS (9)
  - Chest pain [Unknown]
  - Dyspnoea [Unknown]
  - Respiratory failure [Fatal]
  - Acute kidney injury [Unknown]
  - Small intestinal obstruction [Unknown]
  - Oedema genital [Unknown]
  - Ascites [Unknown]
  - Sepsis [Unknown]
  - Deep vein thrombosis [Unknown]

NARRATIVE: CASE EVENT DATE: 20181211
